FAERS Safety Report 5315653-3 (Version None)
Quarter: 2007Q2

REPORT INFORMATION
  Report Type: 
  Country: None (occurrence: None)
  Receive Date: 20070503
  Receipt Date: 20070427
  Transmission Date: 20071010
  Serious: Yes (Hospitalization)
  Sender: FDA-Public Use
  Company Number: US-GENENTECH-237536

PATIENT
  Sex: Male
  Weight: 77 kg

DRUGS (13)
  1. BEVACIZUMAB [Suspect]
     Indication: PROSTATE CANCER
     Dosage: 15 MG/KG, UNK
     Dates: start: 20060914, end: 20061207
  2. DOCETAXEL [Concomitant]
     Indication: PROSTATE CANCER
     Dosage: 70 MG/M2, Q3W
     Route: 042
     Dates: start: 20060914, end: 20061228
  3. ASPIRIN [Concomitant]
     Indication: DRUG USE FOR UNKNOWN INDICATION
     Dosage: 81 MG, QD
     Route: 048
     Dates: start: 20060824
  4. ATIVAN [Concomitant]
     Indication: DRUG USE FOR UNKNOWN INDICATION
     Dosage: 0.5 MG, SINGLE
     Route: 048
     Dates: start: 20070102, end: 20070103
  5. COMPAZINE [Concomitant]
     Indication: NAUSEA
     Dosage: 10 MG, PRN
     Route: 048
     Dates: start: 20060914
  6. DEXAMETHASONE 0.5MG TAB [Concomitant]
     Indication: DRUG USE FOR UNKNOWN INDICATION
     Dosage: 8 MG, Q12H
     Dates: start: 20060824
  7. FISH OIL [Concomitant]
     Indication: DRUG USE FOR UNKNOWN INDICATION
     Dosage: 1000 MG, TID
     Route: 048
     Dates: start: 20060824
  8. HYCODAN [Concomitant]
     Indication: COUGH
     Dosage: 5 ML, PRN
     Route: 048
     Dates: start: 20070102
  9. HYCODAN [Concomitant]
     Dosage: 10 ML, PRN
     Route: 048
     Dates: start: 20070102
  10. LOVASTATIN [Concomitant]
     Indication: DRUG USE FOR UNKNOWN INDICATION
     Dosage: 20 MG, QHS
     Route: 048
     Dates: start: 20060824
  11. NEULASTA [Concomitant]
     Indication: DRUG USE FOR UNKNOWN INDICATION
     Dosage: 6 MG, SINGLE
     Route: 058
     Dates: start: 20061114
  12. ROBITUSSIN AC (UNITED STATES) [Concomitant]
     Indication: COUGH
     Dosage: 5 ML, PRN
     Route: 048
  13. GLUCOSAMINE [Concomitant]
     Indication: DRUG USE FOR UNKNOWN INDICATION

REACTIONS (1)
  - BLADDER PERFORATION [None]
